FAERS Safety Report 25219408 (Version 1)
Quarter: 2025Q2

REPORT INFORMATION
  Report Type: Spontaneous
  Country: US (occurrence: US)
  Receive Date: 20250421
  Receipt Date: 20250421
  Transmission Date: 20250717
  Serious: Yes (Death, Hospitalization, Other)
  Sender: EPIC PHARM
  Company Number: US-EPICPHARMA-US-2025EPCLIT00456

PATIENT
  Age: 78 Year
  Sex: Male

DRUGS (1)
  1. FLECAINIDE ACETATE [Suspect]
     Active Substance: FLECAINIDE ACETATE
     Indication: Atrial fibrillation
     Route: 065

REACTIONS (7)
  - Cardiogenic shock [Fatal]
  - Hypoxia [Fatal]
  - Electrocardiogram QRS complex prolonged [Fatal]
  - Mental status changes [Fatal]
  - Hypotension [Fatal]
  - Tachycardia [Fatal]
  - Toxicity to various agents [Fatal]
